FAERS Safety Report 7380379-1 (Version None)
Quarter: 2011Q1

REPORT INFORMATION
  Report Type: 
  Country: None (occurrence: None)
  Receive Date: 20110329
  Receipt Date: 20110322
  Transmission Date: 20110831
  Serious: Yes (Other)
  Sender: FDA-Public Use
  Company Number: FR-ROCHE-760170

PATIENT
  Sex: Female
  Weight: 62 kg

DRUGS (1)
  1. AVASTIN [Suspect]
     Route: 042
     Dates: start: 20100715, end: 20101230

REACTIONS (2)
  - ARRHYTHMIA [None]
  - EPISTAXIS [None]
